FAERS Safety Report 8471031-X (Version None)
Quarter: 2012Q2

REPORT INFORMATION
  Report Type: 
  Country: None (occurrence: None)
  Receive Date: 20120620
  Receipt Date: 20120605
  Transmission Date: 20120825
  Serious: Yes (Hospitalization, Other)
  Sender: FDA-Public Use
  Company Number: THQ2012A04842

PATIENT
  Age: 47 Year
  Sex: Male

DRUGS (1)
  1. ACTOS [Suspect]
     Indication: PRODUCT USED FOR UNKNOWN INDICATION
     Dosage: PER ORAL
     Route: 048

REACTIONS (4)
  - PANCREATIC DISORDER [None]
  - BLOOD GLUCOSE INCREASED [None]
  - RENAL DISORDER [None]
  - CARDIAC DISORDER [None]
